FAERS Safety Report 4762782-9 (Version None)
Quarter: 2005Q3

REPORT INFORMATION
  Report Type: 
  Country: None (occurrence: None)
  Receive Date: 20050907
  Receipt Date: 20050826
  Transmission Date: 20060218
  Serious: Yes (Hospitalization)
  Sender: FDA-Public Use
  Company Number: DE-JNJFOC-20050806405

PATIENT
  Sex: Male
  Weight: 70 kg

DRUGS (5)
  1. DURAGESIC-100 [Suspect]
     Indication: POST HERPETIC NEURALGIA
     Route: 062
  2. DURAGESIC-100 [Suspect]
     Route: 062
  3. VELCADE [Suspect]
     Indication: PLASMACYTOMA
     Route: 042
  4. NEURONTIN [Concomitant]
     Route: 065
  5. PANTOZOL [Concomitant]
     Route: 048

REACTIONS (6)
  - CLOSTRIDIUM COLITIS [None]
  - DEHYDRATION [None]
  - PANCYTOPENIA [None]
  - RENAL FAILURE [None]
  - SOMNOLENCE [None]
  - URINARY TRACT INFECTION [None]
